FAERS Safety Report 12492319 (Version 6)
Quarter: 2020Q2

REPORT INFORMATION
  Report Type: Report from Study
  Country: US (occurrence: US)
  Receive Date: 20160623
  Receipt Date: 20200518
  Transmission Date: 20200713
  Serious: Yes (Hospitalization, Disabling, Other)
  Sender: FDA-Public Use
  Company Number: US-SA-2016SA103529

PATIENT
  Age: 36 Year
  Sex: Male

DRUGS (2)
  1. ALEMTUZUMAB [Suspect]
     Active Substance: ALEMTUZUMAB
     Dosage: 12 MG, QD
     Route: 041
     Dates: start: 20170613, end: 20170615
  2. ALEMTUZUMAB [Suspect]
     Active Substance: ALEMTUZUMAB
     Indication: MULTIPLE SCLEROSIS
     Dosage: 12 MG,QD
     Route: 041
     Dates: start: 20160516, end: 20160520

REACTIONS (14)
  - Hemiplegia [Not Recovered/Not Resolved]
  - Facial paralysis [Recovered/Resolved]
  - Seizure [Unknown]
  - Tremor [Not Recovered/Not Resolved]
  - Loss of personal independence in daily activities [Unknown]
  - Feeling hot [Unknown]
  - Pain [Unknown]
  - Cerebral disorder [Not Recovered/Not Resolved]
  - Magnetic resonance imaging abnormal [Not Recovered/Not Resolved]
  - Unevaluable event [Unknown]
  - Unresponsive to stimuli [Not Recovered/Not Resolved]
  - Cerebrovascular accident [Not Recovered/Not Resolved]
  - Confusional state [Not Recovered/Not Resolved]
  - Musculoskeletal stiffness [Not Recovered/Not Resolved]

NARRATIVE: CASE EVENT DATE: 201605
